FAERS Safety Report 8033647-4 (Version None)
Quarter: 2012Q1

REPORT INFORMATION
  Report Type: 
  Country: None (occurrence: None)
  Receive Date: 20120110
  Receipt Date: 20111230
  Transmission Date: 20120608
  Serious: Yes (Other)
  Sender: FDA-Public Use
  Company Number: US-WATSON-2011-22580

PATIENT
  Age: 36 Year
  Sex: Male

DRUGS (1)
  1. PREDNISONE TAB [Suspect]
     Indication: AUTOIMMUNE DISORDER
     Dosage: 60 MG DAILY
     Route: 048

REACTIONS (1)
  - HYPERAMMONAEMIC ENCEPHALOPATHY [None]
